FAERS Safety Report 8223714-4 (Version None)
Quarter: 2012Q1

REPORT INFORMATION
  Report Type: 
  Country: None (occurrence: None)
  Receive Date: 20120321
  Receipt Date: 20120308
  Transmission Date: 20120608
  Serious: Yes (Hospitalization)
  Sender: FDA-Public Use
  Company Number: US-RANBAXY-2012US-53890

PATIENT
  Age: 58 Year
  Sex: Female

DRUGS (2)
  1. SERTRALINE HYDROCHLORIDE [Suspect]
     Indication: BIPOLAR DISORDER
     Dosage: 50MG
     Route: 065
  2. ZIPRASIDONE HYDROCHLORIDE [Suspect]
     Indication: BIPOLAR DISORDER
     Dosage: 40 MG, BID
     Route: 065

REACTIONS (2)
  - PARKINSONISM [None]
  - RABBIT SYNDROME [None]
